FAERS Safety Report 8160339-3 (Version None)
Quarter: 2012Q1

REPORT INFORMATION
  Report Type: 
  Country: None (occurrence: None)
  Receive Date: 20120223
  Receipt Date: 20120216
  Transmission Date: 20120608
  Serious: Yes (Other)
  Sender: FDA-Public Use
  Company Number: US-US-EMD SERONO, INC.-7114465

PATIENT
  Sex: Female

DRUGS (2)
  1. VALIUM [Concomitant]
     Indication: FEELING OF RELAXATION
  2. REBIF [Suspect]
     Indication: MULTIPLE SCLEROSIS
     Route: 058
     Dates: start: 20050613

REACTIONS (3)
  - JOINT STIFFNESS [None]
  - DYSPNOEA [None]
  - COELIAC DISEASE [None]
